FAERS Safety Report 7808963-9 (Version None)
Quarter: 2011Q4

REPORT INFORMATION
  Report Type: 
  Country: None (occurrence: None)
  Receive Date: 20111007
  Receipt Date: 20110930
  Transmission Date: 20120403
  Serious: Yes (Hospitalization)
  Sender: FDA-Public Use
  Company Number: DKLU1073505

PATIENT
  Age: 13 Year
  Sex: Female

DRUGS (2)
  1. SABRIL [Suspect]
     Indication: COMPLEX PARTIAL SEIZURES
     Dosage: 500 MG MILLIGRAM(S), 2 IN 1 D, ORAL
     Route: 048
     Dates: end: 20110928
  2. SABRIL [Suspect]
     Indication: EPILEPSY
     Dosage: 500 MG MILLIGRAM(S), 2 IN 1 D, ORAL
     Route: 048
     Dates: end: 20110928

REACTIONS (3)
  - TEARFULNESS [None]
  - SLEEP DISORDER [None]
  - PSYCHOLOGICAL FACTOR AFFECTING MEDICAL CONDITION [None]
